FAERS Safety Report 14360581 (Version 4)
Quarter: 2018Q4

REPORT INFORMATION
  Report Type: Spontaneous
  Country: PL (occurrence: PL)
  Receive Date: 20180106
  Receipt Date: 20181108
  Transmission Date: 20190204
  Serious: Yes (Life-Threatening, Other)
  Sender: FDA-Public Use
  Company Number: PL-AUROBINDO-AUR-APL-2018-001082

PATIENT
  Age: 46 Year
  Sex: Male

DRUGS (8)
  1. OMBITASVIR [Concomitant]
     Active Substance: OMBITASVIR
     Indication: PRODUCT USED FOR UNKNOWN INDICATION
     Dosage: (3D) +RBV ()
     Dates: start: 20151215
  2. RIBAVIRIN. [Suspect]
     Active Substance: RIBAVIRIN
     Dosage: 1000 MILLIGRAM
     Route: 065
     Dates: start: 20160126
  3. PARITAPREVIR W/RITONAVIR [Concomitant]
     Indication: PRODUCT USED FOR UNKNOWN INDICATION
     Dosage: (3D) +RBV ()
     Route: 065
     Dates: start: 20151215
  4. TACROLIMUS. [Concomitant]
     Active Substance: TACROLIMUS
     Indication: IMMUNOSUPPRESSION
     Dosage: 0.5 MILLIGRAM
     Route: 065
  5. RIBAVIRIN. [Suspect]
     Active Substance: RIBAVIRIN
     Dosage: 100 MILLIGRAM, ONCE A DAY
     Route: 065
     Dates: start: 20151215
  6. DASABUVIR W/OMBITASVIR/PARITAPREVIR/RITONAVIR [Concomitant]
     Indication: PRODUCT USED FOR UNKNOWN INDICATION
     Dosage: (3D) +RBV ()
     Dates: start: 20151215, end: 20160107
  7. RIBAVIRIN. [Suspect]
     Active Substance: RIBAVIRIN
     Indication: HEPATITIS C
     Dosage: (3D) +RBV
     Route: 065
     Dates: start: 20151215, end: 20160107
  8. PREDNISONE. [Concomitant]
     Active Substance: PREDNISONE
     Indication: IMMUNOSUPPRESSION
     Dosage: UNK
     Route: 065

REACTIONS (2)
  - Anaemia [Unknown]
  - Drug ineffective [Unknown]

NARRATIVE: CASE EVENT DATE: 2016
